FAERS Safety Report 5476281-2 (Version None)
Quarter: 2007Q4

REPORT INFORMATION
  Report Type: 
  Country: None (occurrence: None)
  Receive Date: 20071003
  Receipt Date: 20070921
  Transmission Date: 20080405
  Serious: Yes (Other)
  Sender: FDA-Public Use
  Company Number: ES-PFIZER INC-2007053663

PATIENT
  Sex: Female
  Weight: 49 kg

DRUGS (1)
  1. CHAMPIX [Suspect]
     Indication: SMOKING CESSATION THERAPY
     Route: 048
     Dates: start: 20070611, end: 20070614

REACTIONS (3)
  - ACCOMMODATION DISORDER [None]
  - ASTHENIA [None]
  - NAUSEA [None]
